FAERS Safety Report 26210153 (Version 1)
Quarter: 2025Q4

REPORT INFORMATION
  Report Type: Spontaneous
  Country: US (occurrence: US)
  Receive Date: 20251229
  Receipt Date: 20251229
  Transmission Date: 20260117
  Serious: Yes (Other)
  Sender: MALLINCKRODT
  Company Number: US-MALLINCKRODT-MNK202508283

PATIENT
  Age: 37 Year
  Sex: Male

DRUGS (7)
  1. NITRIC OXIDE [Suspect]
     Active Substance: NITRIC OXIDE
     Indication: Acute respiratory failure
     Dosage: UNKNOWN
     Route: 055
  2. PREDNISONE [Concomitant]
     Active Substance: PREDNISONE
     Dosage: UNKNOWN (HIGH DOSE)
  3. OXYGEN [Concomitant]
     Active Substance: OXYGEN
  4. OXYGEN [Concomitant]
     Active Substance: OXYGEN
     Dosage: UNKNOWN (DOSE INCREASED)
  5. VANCOMYCIN [Concomitant]
     Active Substance: VANCOMYCIN
     Dosage: UNKNOWN
  6. CEFEPIME [Concomitant]
     Active Substance: CEFEPIME HYDROCHLORIDE
     Dosage: UNKNOWN
  7. LEVOFLOXACIN [Concomitant]
     Active Substance: LEVOFLOXACIN
     Dosage: UNKNOWN

REACTIONS (5)
  - Pulmonary fibrosis [Unknown]
  - Disease progression [Unknown]
  - Respiratory disorder [Not Recovered/Not Resolved]
  - Product use issue [Unknown]
  - Drug ineffective [Unknown]
